FAERS Safety Report 4617628-6 (Version None)
Quarter: 2005Q1

REPORT INFORMATION
  Report Type: 
  Country: None (occurrence: None)
  Receive Date: 20050324
  Receipt Date: 20050314
  Transmission Date: 20050727
  Serious: Yes (Life-Threatening, Hospitalization, Disabling)
  Sender: FDA-Public Use
  Company Number: US-MERCK-0503USA02374

PATIENT
  Age: 51 Year
  Sex: Female

DRUGS (3)
  1. VIOXX [Suspect]
     Indication: FIBROMYALGIA
     Route: 048
     Dates: start: 19990601, end: 20001201
  2. VITAMINS (UNSPECIFIED) [Concomitant]
     Route: 065
  3. MINERALS (UNSPECIFIED) [Concomitant]
     Route: 065

REACTIONS (1)
  - DYSPNOEA [None]
